FAERS Safety Report 6993959-X (Version None)
Quarter: 2010Q3

REPORT INFORMATION
  Report Type: 
  Country: None (occurrence: None)
  Receive Date: 20100917
  Receipt Date: 20100302
  Transmission Date: 20110219
  Serious: Yes (Hospitalization, Other)
  Sender: FDA-Public Use
  Company Number: US-ASTRAZENECA-2009UW20980

PATIENT
  Age: 56 Year
  Sex: Male
  Weight: 77.1 kg

DRUGS (7)
  1. SEROQUEL [Suspect]
     Dosage: 300-600 MG
     Route: 048
     Dates: start: 20070614
  2. ABILIFY [Concomitant]
     Route: 048
     Dates: start: 20041223
  3. LAMICTAL [Concomitant]
     Dosage: 100-200 MG DAILY
     Route: 048
     Dates: start: 20060308
  4. BENZTROPINE MESYLATE [Concomitant]
     Dates: start: 20070920
  5. TRAZODONE HCL [Concomitant]
     Dosage: 50-150 MG
     Dates: start: 20070920
  6. ATIVAN [Concomitant]
     Indication: CONFUSIONAL STATE
     Route: 048
     Dates: start: 20080731
  7. ATIVAN [Concomitant]
     Indication: AGITATION
     Route: 048
     Dates: start: 20080731

REACTIONS (4)
  - DIABETES MELLITUS [None]
  - KETOACIDOSIS [None]
  - PANCREATITIS [None]
  - PANCREATITIS ACUTE [None]
